FAERS Safety Report 19965490 (Version 7)
Quarter: 2022Q1

REPORT INFORMATION
  Report Type: Report from Study
  Country: RS (occurrence: RS)
  Receive Date: 20211018
  Receipt Date: 20220304
  Transmission Date: 20220423
  Serious: Yes (Death, Hospitalization, Other)
  Sender: FDA-Public Use
  Company Number: RS-CELGENE-SBR-20211002498

PATIENT
  Sex: Male
  Weight: 98 kg

DRUGS (24)
  1. OZANIMOD [Suspect]
     Active Substance: OZANIMOD
     Indication: Relapsing multiple sclerosis
     Route: 048
     Dates: start: 20160408, end: 20210927
  2. OZANIMOD [Suspect]
     Active Substance: OZANIMOD
     Route: 048
     Dates: end: 20211011
  3. ASPIRIN [Concomitant]
     Active Substance: ASPIRIN
     Indication: Atherosclerosis prophylaxis
     Dosage: 100 MILLIGRAM
     Route: 048
     Dates: start: 20090903
  4. AMLODIPINUM [Concomitant]
     Indication: Hypertension
     Dosage: 5 MILLIGRAM
     Route: 048
     Dates: start: 20180405
  5. Metforminum [Concomitant]
     Indication: Type 2 diabetes mellitus
     Dosage: 1500 MILLIGRAM
     Route: 048
     Dates: start: 20180531
  6. Perindoprilarginin/Indapamid [Concomitant]
     Indication: Hypertension
     Dosage: 10/2.5 MILLIGRAM
     Route: 048
     Dates: start: 20180405
  7. TRAZODONE [Concomitant]
     Active Substance: TRAZODONE HYDROCHLORIDE
     Indication: Depression
     Dosage: 50 MILLIGRAM
     Route: 048
     Dates: start: 20130305
  8. FAVIPIRAVIR [Concomitant]
     Active Substance: FAVIPIRAVIR
     Indication: COVID-19
     Dosage: 1200 MILLIGRAM
     Route: 048
     Dates: start: 20210920, end: 20211003
  9. PERINDOPRIL [Concomitant]
     Active Substance: PERINDOPRIL
     Indication: Hypertension
     Dosage: 5 MILLIGRAM
     Route: 048
  10. PERINDOPRIL [Concomitant]
     Active Substance: PERINDOPRIL
     Indication: Product used for unknown indication
     Route: 048
  11. NORVASC [Concomitant]
     Active Substance: AMLODIPINE BESYLATE
     Indication: Product used for unknown indication
     Route: 048
  12. Pancef [Concomitant]
     Indication: Product used for unknown indication
     Route: 048
  13. FORTECA [Concomitant]
     Indication: Product used for unknown indication
     Dosage: 800 MILLIGRAM
     Route: 048
  14. CEFTRIAXONE SODIUM [Concomitant]
     Active Substance: CEFTRIAXONE SODIUM
     Indication: Product used for unknown indication
     Dosage: 2 G IN 100ML 0.9%NACL
     Route: 065
  15. Lemod [Concomitant]
     Indication: Product used for unknown indication
     Dosage: 60+20MG
     Route: 065
  16. Controlic [Concomitant]
     Indication: Product used for unknown indication
     Route: 065
  17. ENOXAPARIN SODIUM [Concomitant]
     Active Substance: ENOXAPARIN SODIUM
     Indication: Product used for unknown indication
     Dosage: .6 MILLILITER
     Route: 065
  18. VITAMIN C [Concomitant]
     Active Substance: ASCORBIC ACID
     Indication: Product used for unknown indication
     Dosage: 2
     Route: 065
  19. ALFACALCIDOL [Concomitant]
     Active Substance: ALFACALCIDOL
     Indication: Product used for unknown indication
     Dosage: 2 MICROGRAM
     Route: 048
  20. Bulardi [Concomitant]
     Indication: Product used for unknown indication
     Dosage: 2
     Route: 048
  21. ACETAMINOPHEN [Concomitant]
     Active Substance: ACETAMINOPHEN
     Indication: Product used for unknown indication
     Route: 065
  22. Livorex forte [Concomitant]
     Indication: Product used for unknown indication
     Route: 048
  23. OLUMIANT [Concomitant]
     Active Substance: BARICITINIB
     Indication: Product used for unknown indication
     Dosage: 4 MILLIGRAM
     Route: 048
     Dates: start: 20211007
  24. CALCIUM GLUCONATE [Concomitant]
     Active Substance: CALCIUM GLUCONATE
     Indication: Product used for unknown indication
     Dosage: 1
     Route: 065

REACTIONS (1)
  - COVID-19 pneumonia [Fatal]

NARRATIVE: CASE EVENT DATE: 20210927
